FAERS Safety Report 15076416 (Version 1)
Quarter: 2018Q3

REPORT INFORMATION
  Report Type: Spontaneous
  Country: ZA (occurrence: ZA)
  Receive Date: 20180627
  Receipt Date: 20180627
  Transmission Date: 20181010
  Serious: Yes (Hospitalization)
  Sender: FDA-Public Use
  Company Number: ZA-PFIZER INC-2018259457

PATIENT
  Age: 58 Year
  Sex: Female

DRUGS (7)
  1. MYLAN PANTOPRAZOLE [Suspect]
     Active Substance: PANTOPRAZOLE SODIUM
     Dosage: 20 MG, UNK
  2. PYROCAPS (PIROXICAM) [Suspect]
     Active Substance: PIROXICAM
     Dosage: 20 MG, UNK
  3. DORMONOCT [Suspect]
     Active Substance: LOPRAZOLAM
     Dosage: 2 MG, UNK
  4. RIDAQ [Suspect]
     Active Substance: HYDROCHLOROTHIAZIDE
     Dosage: 12.5 MG, UNK
  5. METHOTREXATE. [Suspect]
     Active Substance: METHOTREXATE
     Dosage: 2.5 MG, UNK
  6. YELATE [Suspect]
     Active Substance: DULOXETINE HYDROCHLORIDE
     Dosage: 60 MG, UNK
  7. BE?TABS PREDNISONE [Suspect]
     Active Substance: PREDNISONE
     Dosage: 5 MG, UNK

REACTIONS (1)
  - Road traffic accident [Unknown]
